FAERS Safety Report 17829554 (Version 1)
Quarter: 2020Q2

REPORT INFORMATION
  Report Type: Spontaneous
  Country: LV (occurrence: LV)
  Receive Date: 20200527
  Receipt Date: 20200527
  Transmission Date: 20200714
  Serious: Yes (Other)
  Sender: FDA-Public Use
  Company Number: LV-TAKEDA-2020TUS023669

PATIENT
  Age: 14 Year
  Sex: Female

DRUGS (2)
  1. ENTYVIO [Suspect]
     Active Substance: VEDOLIZUMAB
     Indication: COLITIS ULCERATIVE
     Dosage: 300 MILLIGRAM
     Route: 042
     Dates: start: 20200212, end: 20200325
  2. TACROLIMUS. [Concomitant]
     Active Substance: TACROLIMUS
     Indication: COLITIS ULCERATIVE
     Dosage: 2 MILLIGRAM, QD
     Route: 048
     Dates: start: 20200210, end: 20200407

REACTIONS (3)
  - Off label use [Unknown]
  - Varicella [Recovered/Resolved]
  - Colitis ulcerative [Unknown]

NARRATIVE: CASE EVENT DATE: 20200407
